FAERS Safety Report 7394948-6 (Version None)
Quarter: 2011Q2

REPORT INFORMATION
  Report Type: 
  Country: None (occurrence: None)
  Receive Date: 20110405
  Receipt Date: 20110401
  Transmission Date: 20111010
  Serious: No
  Sender: FDA-Public Use
  Company Number: US-PFIZER INC-2011073356

PATIENT
  Sex: Female
  Weight: 50 kg

DRUGS (3)
  1. ZOLOFT [Suspect]
     Dosage: 50 MG FOR ONE DAY
     Route: 048
  2. ZOLOFT [Suspect]
     Indication: ANXIETY
     Dosage: 25 MG, 1X/DAY
     Route: 048
     Dates: start: 20110301
  3. ZOLOFT [Suspect]
     Dosage: 25 MG EVERY THREE DAYS DAILY
     Route: 048

REACTIONS (1)
  - ABDOMINAL DISCOMFORT [None]
